FAERS Safety Report 4546713-2 (Version None)
Quarter: 2005Q1

REPORT INFORMATION
  Report Type: 
  Country: None (occurrence: None)
  Receive Date: 20050105
  Receipt Date: 20041227
  Transmission Date: 20050727
  Serious: Yes (Death, Life-Threatening, Hospitalization, Other)
  Sender: FDA-Public Use
  Company Number: 2004BI001093

PATIENT
  Age: 56 Year
  Sex: Male

DRUGS (9)
  1. ZEVALIN [Suspect]
     Indication: NON-HODGKIN'S LYMPHOMA
     Dosage: 500 MG; 1X; IV; 1200 MBQ;1X; IV
     Dates: start: 20040902, end: 20040902
  2. ZEVALIN [Suspect]
     Indication: NON-HODGKIN'S LYMPHOMA
     Dosage: 500 MG; 1X; IV; 1200 MBQ;1X; IV
     Dates: start: 20040909, end: 20040909
  3. ZEVALIN [Suspect]
     Indication: NON-HODGKIN'S LYMPHOMA
     Dosage: 500 MG; 1X; IV; 1200 MBQ;1X; IV
     Dates: start: 20040909, end: 20040909
  4. CEFTRIAXONE SODIUM [Concomitant]
  5. CLINDAMYCIN HCL [Concomitant]
  6. HYDROCHLORIDE [Concomitant]
  7. FILGRASTIM [Concomitant]
  8. LEVOFLOXACIN [Concomitant]
  9. FLUCONAZOLE [Concomitant]

REACTIONS (6)
  - FEBRILE NEUTROPENIA [None]
  - INTERVERTEBRAL DISC PROTRUSION [None]
  - MULTI-ORGAN FAILURE [None]
  - PANCYTOPENIA [None]
  - RENAL FAILURE [None]
  - SEPSIS [None]
